FAERS Safety Report 9816994 (Version 4)
Quarter: 2014Q2

REPORT INFORMATION
  Report Type: Spontaneous
  Country: JP (occurrence: JP)
  Receive Date: 20140114
  Receipt Date: 20140401
  Transmission Date: 20141212
  Serious: Yes (Life-Threatening, Hospitalization)
  Sender: FDA-Public Use
  Company Number: JP-GLAXOSMITHKLINE-B0959509A

PATIENT
  Age: 54 Year
  Sex: Female

DRUGS (2)
  1. VOTRIENT 200MG [Suspect]
     Indication: UTERINE LEIOMYOSARCOMA
     Dosage: 800MG PER DAY
     Route: 048
     Dates: start: 20131031, end: 20131111
  2. VOTRIENT 200MG [Suspect]
     Indication: UTERINE LEIOMYOSARCOMA
     Dosage: 200MG PER DAY
     Route: 048
     Dates: start: 20131212, end: 20131219

REACTIONS (7)
  - Pneumothorax [Recovered/Resolved]
  - Cerebral infarction [Recovering/Resolving]
  - Dyspnoea [Recovering/Resolving]
  - Cerebellar infarction [Recovering/Resolving]
  - Vomiting [Recovering/Resolving]
  - Dizziness [Recovering/Resolving]
  - Trousseau^s syndrome [Unknown]
